FAERS Safety Report 6924286-4 (Version None)
Quarter: 2010Q3

REPORT INFORMATION
  Report Type: 
  Country: None (occurrence: None)
  Receive Date: 20100811
  Receipt Date: 20100811
  Transmission Date: 20110219
  Serious: No
  Sender: FDA-Public Use
  Company Number: None

PATIENT
  Age: 63 Year
  Sex: Female

DRUGS (10)
  1. AMIODARONE HCL [Suspect]
     Dates: start: 20051219, end: 20080413
  2. ASPIRIN [Concomitant]
  3. PROZAC [Concomitant]
  4. VYTORIN [Concomitant]
  5. OMEPRAZOLE [Concomitant]
  6. LISINOPRIL [Concomitant]
  7. IMDUR [Concomitant]
  8. PLAVIX [Concomitant]
  9. SYNTHROID [Concomitant]
  10. METOPROLOL [Concomitant]

REACTIONS (13)
  - ACUTE PRERENAL FAILURE [None]
  - ALANINE AMINOTRANSFERASE INCREASED [None]
  - ASCITES [None]
  - ASPARTATE AMINOTRANSFERASE INCREASED [None]
  - HEPATIC CIRRHOSIS [None]
  - HEPATIC STEATOSIS [None]
  - HEPATORENAL SYNDROME [None]
  - HEPATOTOXICITY [None]
  - INFLAMMATION [None]
  - LIVER DISORDER [None]
  - LIVER INJURY [None]
  - MULTI-ORGAN FAILURE [None]
  - PORTAL HYPERTENSION [None]
